FAERS Safety Report 12613345 (Version 1)
Quarter: 2016Q3

REPORT INFORMATION
  Report Type: Spontaneous
  Country: US (occurrence: None)
  Receive Date: 20160801
  Receipt Date: 20160801
  Transmission Date: 20161109
  Serious: Yes (Other)
  Sender: FDA-Public Use
  Company Number: None

PATIENT
  Age: 32 Year
  Sex: Female
  Weight: 86.18 kg

DRUGS (4)
  1. IMIQUIMOD. [Suspect]
     Active Substance: IMIQUIMOD
     Indication: PAPILLOMA VIRAL INFECTION
     Dosage: 0.25 GRAMS 3X/WK AT BEDTIME APPLIED TO A SURFACE, USUALLY THE SKIN
     Route: 061
     Dates: start: 20160726, end: 20160728
  2. MULTIVITAMIN [Concomitant]
     Active Substance: VITAMINS
  3. IMIQUIMOD. [Suspect]
     Active Substance: IMIQUIMOD
     Indication: ANOGENITAL WARTS
     Dosage: 0.25 GRAMS 3X/WK AT BEDTIME APPLIED TO A SURFACE, USUALLY THE SKIN
     Route: 061
     Dates: start: 20160726, end: 20160728
  4. CULTURELLE PROBIOTIC [Concomitant]

REACTIONS (9)
  - Chills [None]
  - Blister [None]
  - Vulvovaginal pain [None]
  - Vulvovaginal swelling [None]
  - Cellulitis [None]
  - Vulvovaginal discomfort [None]
  - Vaginal mucosal blistering [None]
  - Hyperhidrosis [None]
  - Skin infection [None]

NARRATIVE: CASE EVENT DATE: 20160729
